FAERS Safety Report 8823531 (Version 2)
Quarter: 2012Q4

REPORT INFORMATION
  Report Type: Report from Study
  Country: AU (occurrence: AU)
  Receive Date: 20121003
  Receipt Date: 20121008
  Transmission Date: 20130627
  Serious: Yes (Other)
  Sender: FDA-Public Use
  Company Number: AU-ROCHE-1137648

PATIENT
  Sex: Female

DRUGS (2)
  1. ROACTEMRA [Suspect]
     Indication: RHEUMATOID ARTHRITIS
     Route: 042
     Dates: start: 20100923
  2. ROACTEMRA [Suspect]
     Route: 042
     Dates: start: 20101004

REACTIONS (2)
  - Haemoglobin decreased [Unknown]
  - Malaise [Unknown]
